FAERS Safety Report 24438254 (Version 2)
Quarter: 2024Q4

REPORT INFORMATION
  Report Type: Spontaneous
  Country: FR (occurrence: FR)
  Receive Date: 20241015
  Receipt Date: 20241015
  Transmission Date: 20250115
  Serious: Yes (Hospitalization, Other)
  Sender: PFIZER
  Company Number: FR-STRAGNORDP-2024000653

PATIENT
  Age: 69 Year
  Sex: Female

DRUGS (3)
  1. VORICONAZOLE [Interacting]
     Active Substance: VORICONAZOLE
     Indication: Aspergillus infection
     Dosage: UNK
     Route: 042
  2. VORICONAZOLE [Interacting]
     Active Substance: VORICONAZOLE
     Indication: Aspergillus infection
     Dosage: 300 MG, 2X/DAY
     Route: 048
  3. AMIODARONE [Interacting]
     Active Substance: AMIODARONE
     Indication: Atrial fibrillation
     Dosage: UNK
     Route: 042

REACTIONS (6)
  - Overdose [Unknown]
  - Respiratory distress [Unknown]
  - Hepatic cytolysis [Unknown]
  - Atrial fibrillation [Unknown]
  - Drug interaction [Unknown]
  - Toxicity to various agents [Unknown]
